FAERS Safety Report 13766693 (Version 1)
Quarter: 2017Q3

REPORT INFORMATION
  Report Type: Spontaneous
  Country: GB (occurrence: GB)
  Receive Date: 20170719
  Receipt Date: 20170719
  Transmission Date: 20171127
  Serious: Yes (Hospitalization)
  Sender: FDA-Public Use
  Company Number: GB-PFIZER INC-2590491

PATIENT
  Sex: Female

DRUGS (4)
  1. PHENYTOIN. [Suspect]
     Active Substance: PHENYTOIN
     Dosage: UNK, 3X/DAY (TID), FREQ: 3 DAY; INTERVAL: 1
     Dates: start: 20141118
  2. KEPPRA [Suspect]
     Active Substance: LEVETIRACETAM
     Dosage: 500 MG, BID, 2 KEPPRA (=500 MG) IN THE MORNING AND ONE IN THE EVENING, FREQ: 2 DAY; INTERVAL: 1
     Dates: start: 20141118
  3. KEPPRA [Suspect]
     Active Substance: LEVETIRACETAM
     Indication: EPILEPSY
     Dosage: 750 MG, ONCE DAILY (QD), FREQ: 1 DAY; INTERVAL: 1
     Dates: start: 201409, end: 201411
  4. PHENYTOIN. [Suspect]
     Active Substance: PHENYTOIN
     Indication: PRODUCT USED FOR UNKNOWN INDICATION
     Dosage: UNK
     Dates: start: 201402, end: 201411

REACTIONS (4)
  - Epilepsy [Unknown]
  - Drug ineffective [Unknown]
  - Fatigue [Unknown]
  - Disturbance in attention [Unknown]

NARRATIVE: CASE EVENT DATE: 2014
